FAERS Safety Report 10846258 (Version 1)
Quarter: 2015Q1

REPORT INFORMATION
  Report Type: Report from Study
  Country: US (occurrence: US)
  Receive Date: 20150220
  Receipt Date: 20150220
  Transmission Date: 20150721
  Serious: No
  Sender: FDA-Public Use
  Company Number: US-ABBVIE-15K-163-1329013-00

PATIENT
  Age: 33 Year
  Sex: Female

DRUGS (2)
  1. HUMIRA [Suspect]
     Active Substance: ADALIMUMAB
     Indication: CROHN^S DISEASE
     Dosage: DAY 1
     Route: 065
     Dates: start: 20141212, end: 20141212
  2. HUMIRA [Suspect]
     Active Substance: ADALIMUMAB
     Dosage: DAY 15
     Route: 065
     Dates: start: 20141226, end: 20141226

REACTIONS (7)
  - Productive cough [Not Recovered/Not Resolved]
  - Lower respiratory tract infection [Not Recovered/Not Resolved]
  - Respiratory tract congestion [Not Recovered/Not Resolved]
  - Chest discomfort [Not Recovered/Not Resolved]
  - Incorrect dose administered [Unknown]
  - Ear pain [Recovered/Resolved]
  - Sputum discoloured [Not Recovered/Not Resolved]

NARRATIVE: CASE EVENT DATE: 201412
